FAERS Safety Report 6171225-2 (Version None)
Quarter: 2009Q2

REPORT INFORMATION
  Report Type: 
  Country: None (occurrence: None)
  Receive Date: 20090428
  Receipt Date: 20090428
  Transmission Date: 20091009
  Serious: Yes (Other)
  Sender: FDA-Public Use
  Company Number: None

PATIENT
  Age: 28 Year
  Sex: Female
  Weight: 65.7716 kg

DRUGS (5)
  1. SINGULAIR [Suspect]
     Indication: ASTHMA
     Dosage: 10MG QD PO
     Route: 048
     Dates: start: 20051101, end: 20081101
  2. SINGULAIR [Suspect]
     Indication: ASTHMA EXERCISE INDUCED
     Dosage: 10MG QD PO
     Route: 048
     Dates: start: 20051101, end: 20081101
  3. SINGULAIR [Suspect]
     Indication: COUGH
     Dosage: 10MG QD PO
     Route: 048
     Dates: start: 20051101, end: 20081101
  4. CLARITIN [Concomitant]
  5. ENPRESSE ORAL CONTRACEPTIVE [Concomitant]

REACTIONS (1)
  - MENORRHAGIA [None]
